FAERS Safety Report 8979023 (Version 1)
Quarter: 2012Q4

REPORT INFORMATION
  Report Type: Spontaneous
  Country: US (occurrence: None)
  Receive Date: 20121218
  Receipt Date: 20121218
  Transmission Date: 20130627
  Serious: No
  Sender: FDA-Public Use
  Company Number: None

PATIENT
  Age: 48 Year
  Sex: Male
  Weight: 109 kg

DRUGS (2)
  1. BOCEPREVIR [Suspect]
     Indication: HEPATITIS C
     Route: 048
     Dates: start: 20111126, end: 20120508
  2. RIBAVIRIN [Suspect]
     Route: 048
     Dates: start: 20111025

REACTIONS (4)
  - Diarrhoea [None]
  - Anorectal discomfort [None]
  - Stomatitis [None]
  - Dry mouth [None]
